FAERS Safety Report 24949722 (Version 1)
Quarter: 2025Q1

REPORT INFORMATION
  Report Type: Report from Study
  Country: US (occurrence: US)
  Receive Date: 20250210
  Receipt Date: 20250210
  Transmission Date: 20250409
  Serious: Yes (Hospitalization)
  Sender: ROCHE
  Company Number: US-ROCHE-10000195548

PATIENT
  Age: 46 Year
  Sex: Male
  Weight: 83.91 kg

DRUGS (6)
  1. OCREVUS [Suspect]
     Active Substance: OCRELIZUMAB
     Indication: Relapsing-remitting multiple sclerosis
     Route: 042
  2. NUVIGIL [Concomitant]
     Active Substance: ARMODAFINIL
  3. VITAMIN D3 [Concomitant]
     Active Substance: CHOLECALCIFEROL
  4. PREGABALIN [Concomitant]
     Active Substance: PREGABALIN
  5. CYANOCOBALAMIN [Concomitant]
     Active Substance: CYANOCOBALAMIN
  6. VANCOMYCIN [Concomitant]
     Active Substance: VANCOMYCIN

REACTIONS (11)
  - Pneumonia [Recovered/Resolved]
  - Neoplasm [Recovered/Resolved]
  - Colon cancer stage I [Recovered/Resolved]
  - Pyrexia [Unknown]
  - Nasopharyngitis [Not Recovered/Not Resolved]
  - Vitamin B12 deficiency [Unknown]
  - Vitamin D deficiency [Unknown]
  - Immunosuppression [Unknown]
  - CD19 lymphocytes decreased [Unknown]
  - White blood cell count decreased [Unknown]
  - Tremor [Unknown]

NARRATIVE: CASE EVENT DATE: 20241001
